FAERS Safety Report 4350923-7 (Version None)
Quarter: 2004Q2

REPORT INFORMATION
  Report Type: 
  Country: None (occurrence: None)
  Receive Date: 20040430
  Receipt Date: 20031029
  Transmission Date: 20050107
  Serious: Yes (Death)
  Sender: FDA-Public Use
  Company Number: US-GLAXOSMITHKLINE-B0313896A

PATIENT
  Age: 29 Year
  Sex: Male

DRUGS (4)
  1. WELLBUTRIN SR [Suspect]
     Route: 048
  2. CITALOPRAM [Suspect]
     Route: 048
  3. ZOLPIDEM [Suspect]
     Route: 048
  4. DIAZEPAM [Suspect]
     Route: 048

REACTIONS (19)
  - ACIDOSIS [None]
  - AREFLEXIA [None]
  - ASPIRATION [None]
  - BRADYCARDIA [None]
  - CARDIO-RESPIRATORY ARREST [None]
  - COMA [None]
  - COMPLETED SUICIDE [None]
  - CONVULSION [None]
  - DEPRESSED LEVEL OF CONSCIOUSNESS [None]
  - ELECTROENCEPHALOGRAM ABNORMAL [None]
  - HYPERKALAEMIA [None]
  - HYPOTENSION [None]
  - PUPIL FIXED [None]
  - PYREXIA [None]
  - RHABDOMYOLYSIS [None]
  - TACHYCARDIA [None]
  - THROMBOCYTOPENIA [None]
  - VENTRICULAR FIBRILLATION [None]
  - VOMITING [None]
